FAERS Safety Report 25587562 (Version 2)
Quarter: 2025Q3

REPORT INFORMATION
  Report Type: Spontaneous
  Country: EU (occurrence: EU)
  Receive Date: 20250721
  Receipt Date: 20250803
  Transmission Date: 20251021
  Serious: Yes (Hospitalization, Other)
  Sender: ABBVIE
  Company Number: EU-ABBVIE-6378654

PATIENT
  Age: 64 Year

DRUGS (2)
  1. ADALIMUMAB [Suspect]
     Active Substance: ADALIMUMAB
     Indication: Colitis ulcerative
     Route: 058
  2. AZATHIOPRINE [Concomitant]
     Active Substance: AZATHIOPRINE
     Indication: Product used for unknown indication

REACTIONS (14)
  - Proctitis ulcerative [Unknown]
  - Frequent bowel movements [Recovering/Resolving]
  - Hypertension [Unknown]
  - Hyperuricaemia [Unknown]
  - Tinnitus [Unknown]
  - Obesity [Unknown]
  - Granuloma [Unknown]
  - Colorectal adenoma [Unknown]
  - Herpes zoster [Unknown]
  - Swollen tongue [Unknown]
  - Tongue coated [Unknown]
  - Spleen disorder [Unknown]
  - Renal disorder [Unknown]
  - Haemostasis [Unknown]

NARRATIVE: CASE EVENT DATE: 20170801
